FAERS Safety Report 12857253 (Version 1)
Quarter: 2016Q4

REPORT INFORMATION
  Report Type: Spontaneous
  Country: US (occurrence: US)
  Receive Date: 20161018
  Receipt Date: 20161018
  Transmission Date: 20170207
  Serious: Yes (Other)
  Sender: FDA-Public Use
  Company Number: US-BAYER-2016-197844

PATIENT
  Age: 16 Year
  Sex: Female

DRUGS (4)
  1. SERTRALINE [Concomitant]
     Active Substance: SERTRALINE HYDROCHLORIDE
     Dosage: 50 MG, DAILY
  2. SERTRALINE [Concomitant]
     Active Substance: SERTRALINE HYDROCHLORIDE
     Dosage: 100 UNK, UNK
  3. ACETYLSALICYLIC ACID({=100 MG) [Suspect]
     Active Substance: ASPIRIN
  4. ALPRAZOLAM. [Concomitant]
     Active Substance: ALPRAZOLAM
     Dosage: 2 TABLETS

REACTIONS (3)
  - Intentional overdose [None]
  - Wrong technique in product usage process [None]
  - Suicide attempt [None]
